FAERS Safety Report 5688168-0 (Version None)
Quarter: 2008Q1

REPORT INFORMATION
  Report Type: 
  Country: None (occurrence: None)
  Receive Date: 20080327
  Receipt Date: 20080313
  Transmission Date: 20080703
  Serious: Yes (Hospitalization)
  Sender: FDA-Public Use
  Company Number: JPI-P-003240

PATIENT
  Age: 53 Year
  Sex: Female

DRUGS (12)
  1. LUVOX [Suspect]
     Indication: DEPRESSION
     Dosage: (25 MG, 1 IN 1 D), ORAL;  (50 MG,1 D), ORAL (75 MG,1 D), ORAL (100 MG,1 D), ORAL(125 MG, D),ORAL
     Route: 048
     Dates: start: 20070719, end: 20070701
  2. LUVOX [Suspect]
     Indication: DEPRESSION
     Dosage: (25 MG, 1 IN 1 D), ORAL;  (50 MG,1 D), ORAL (75 MG,1 D), ORAL (100 MG,1 D), ORAL(125 MG, D),ORAL
     Route: 048
     Dates: start: 20070712, end: 20070718
  3. LUVOX [Suspect]
     Indication: DEPRESSION
     Dosage: (25 MG, 1 IN 1 D), ORAL;  (50 MG,1 D), ORAL (75 MG,1 D), ORAL (100 MG,1 D), ORAL(125 MG, D),ORAL
     Route: 048
     Dates: start: 20070725, end: 20070808
  4. LUVOX [Suspect]
     Indication: DEPRESSION
     Dosage: (25 MG, 1 IN 1 D), ORAL;  (50 MG,1 D), ORAL (75 MG,1 D), ORAL (100 MG,1 D), ORAL(125 MG, D),ORAL
     Route: 048
     Dates: start: 20070809, end: 20070901
  5. LUVOX [Suspect]
     Indication: DEPRESSION
     Dosage: (25 MG, 1 IN 1 D), ORAL;  (50 MG,1 D), ORAL (75 MG,1 D), ORAL (100 MG,1 D), ORAL(125 MG, D),ORAL
     Route: 048
     Dates: start: 20070830, end: 20070901
  6. LUVOX [Suspect]
     Indication: DEPRESSION
     Dosage: (25 MG, 1 IN 1 D), ORAL;  (50 MG,1 D), ORAL (75 MG,1 D), ORAL (100 MG,1 D), ORAL(125 MG, D),ORAL
     Route: 048
     Dates: start: 20070920, end: 20071107
  7. LUVOX [Suspect]
     Indication: DEPRESSION
     Dosage: (25 MG, 1 IN 1 D), ORAL;  (50 MG,1 D), ORAL (75 MG,1 D), ORAL (100 MG,1 D), ORAL(125 MG, D),ORAL
     Route: 048
     Dates: start: 20071108, end: 20071219
  8. LUVOX [Suspect]
     Indication: DEPRESSION
     Dosage: (25 MG, 1 IN 1 D), ORAL;  (50 MG,1 D), ORAL (75 MG,1 D), ORAL (100 MG,1 D), ORAL(125 MG, D),ORAL
     Route: 048
     Dates: start: 20071220, end: 20080217
  9. MOSAPRIDE CITRATE (MOSAPRIDE CITRATE) [Suspect]
     Indication: NAUSEA
     Dosage: (15 MG ,1 D), ORAL;  (10 MG,1 D),ORAL  (10 MG,L D),AURICULAR (OTIC)
     Route: 048
     Dates: start: 20070712, end: 20070808
  10. MOSAPRIDE CITRATE (MOSAPRIDE CITRATE) [Suspect]
     Indication: NAUSEA
     Dosage: (15 MG ,1 D), ORAL;  (10 MG,1 D),ORAL  (10 MG,L D),AURICULAR (OTIC)
     Route: 048
     Dates: start: 20070809, end: 20080116
  11. MOSAPRIDE CITRATE (MOSAPRIDE CITRATE) [Suspect]
     Indication: NAUSEA
     Dosage: (15 MG ,1 D), ORAL;  (10 MG,1 D),ORAL  (10 MG,L D),AURICULAR (OTIC)
     Route: 048
     Dates: start: 20080117, end: 20080212
  12. MOSAPRIDE CITRATE (MOSAPRIDE CITRATE) [Suspect]
     Indication: NAUSEA
     Dosage: (15 MG ,1 D), ORAL;  (10 MG,1 D),ORAL  (10 MG,L D),AURICULAR (OTIC)
     Route: 048
     Dates: start: 20080213, end: 20080217

REACTIONS (1)
  - LIVER DISORDER [None]
